FAERS Safety Report 5078088-7 (Version None)
Quarter: 2006Q3

REPORT INFORMATION
  Report Type: 
  Country: None (occurrence: None)
  Receive Date: 20060720
  Receipt Date: 20060308
  Transmission Date: 20061208
  Serious: Yes (Life-Threatening)
  Sender: FDA-Public Use
  Company Number: 2006MP000350

PATIENT
  Age: 70 Year
  Sex: Male

DRUGS (7)
  1. AGGRASTAT [Suspect]
     Indication: CORONARY ANGIOPLASTY
     Dosage: IV
     Route: 042
     Dates: start: 20060307, end: 20060307
  2. ASPIRIN [Concomitant]
  3. CLOPIDOGREL BISULFATE [Concomitant]
  4. ENALAPRIL MALEATE [Concomitant]
  5. ESOMEPRAZOLE MAGNESIUM [Concomitant]
  6. FLUVASTATIN SODIUM [Concomitant]
  7. METOPROLOL TARTRATE [Concomitant]

REACTIONS (1)
  - THROMBOCYTOPENIA [None]
